FAERS Safety Report 7710349-2 (Version None)
Quarter: 2011Q3

REPORT INFORMATION
  Report Type: 
  Country: None (occurrence: None)
  Receive Date: 20110825
  Receipt Date: 20110613
  Transmission Date: 20111222
  Serious: No
  Sender: FDA-Public Use
  Company Number: US-MYLANLABS-2011S1010571

PATIENT
  Age: 79 Year
  Sex: Female

DRUGS (9)
  1. HYDROCODONE BITARTRATE [Concomitant]
  2. PLAQUENIL [Concomitant]
  3. LANSOPRAZOLE [Suspect]
     Route: 048
     Dates: end: 20110501
  4. METHOTREXATE [Concomitant]
  5. LANSOPRAZOLE [Suspect]
     Indication: DYSPEPSIA
     Route: 048
     Dates: start: 20100901
  6. LANSOPRAZOLE [Suspect]
     Route: 048
     Dates: end: 20110501
  7. LANSOPRAZOLE [Suspect]
     Route: 048
     Dates: start: 20100901
  8. LANSOPRAZOLE [Suspect]
     Route: 048
     Dates: end: 20110501
  9. LANSOPRAZOLE [Suspect]
     Indication: GASTROOESOPHAGEAL REFLUX DISEASE
     Route: 048
     Dates: start: 20100901

REACTIONS (4)
  - GASTROOESOPHAGEAL REFLUX DISEASE [None]
  - DRUG EFFECT DECREASED [None]
  - DYSPEPSIA [None]
  - ABDOMINAL PAIN [None]
